FAERS Safety Report 10190356 (Version 2)
Quarter: 2014Q2

REPORT INFORMATION
  Report Type: Report from Study
  Country: DE (occurrence: DE)
  Receive Date: 20140522
  Receipt Date: 20140611
  Transmission Date: 20141212
  Serious: Yes (Death)
  Sender: FDA-Public Use
  Company Number: DE-JNJFOC-20140512040

PATIENT
  Age: 79 Year
  Sex: Female
  Weight: 65 kg

DRUGS (9)
  1. SILTUXIMAB [Suspect]
     Indication: CASTLEMAN^S DISEASE
     Route: 042
     Dates: start: 20140414, end: 20140512
  2. INSULINE NOVOMIX [Concomitant]
  3. BISOPROLOL [Concomitant]
  4. L-THYROXIN [Concomitant]
  5. ASS [Concomitant]
  6. BETAHISTIN [Concomitant]
  7. PANTOZOL [Concomitant]
  8. TORASEMIDE [Concomitant]
  9. SPIRONOLACTON [Concomitant]

REACTIONS (1)
  - Jejunal perforation [Fatal]
